FAERS Safety Report 5296403-6 (Version None)
Quarter: 2007Q2

REPORT INFORMATION
  Report Type: 
  Country: None (occurrence: None)
  Receive Date: 20070413
  Receipt Date: 20070405
  Transmission Date: 20071010
  Serious: Yes (Other)
  Sender: FDA-Public Use
  Company Number: FR-ROCHE-491515

PATIENT
  Age: 51 Year
  Sex: Female
  Weight: 61 kg

DRUGS (13)
  1. PEG-INTERFERON ALFA 2A (RO 25-8310) [Suspect]
     Indication: HEPATITIS C
     Route: 058
     Dates: start: 20070112, end: 20070309
  2. VX-950 [Suspect]
     Indication: HEPATITIS C
     Route: 048
     Dates: start: 20070112, end: 20070312
  3. POLYKARAYA [Concomitant]
     Indication: CONSTIPATION
     Dosage: IN THE EVENING.
     Route: 048
     Dates: start: 20050615
  4. NUROFEN [Concomitant]
     Indication: HEADACHE
     Dosage: IN THE EVENING.
     Route: 048
     Dates: end: 20070209
  5. TRANXENE [Concomitant]
     Indication: ANXIETY
     Dosage: IN THE EVENING.
     Route: 048
     Dates: start: 20070114
  6. FERROGRAD [Concomitant]
     Indication: IRON DEFICIENCY
     Dosage: IN THE EVENING.
     Route: 048
     Dates: start: 20040615
  7. PRIMPERAN INJ [Concomitant]
     Indication: NAUSEA
     Route: 048
     Dates: start: 20070209
  8. DEXERYL [Concomitant]
     Indication: DRY SKIN
     Dosage: GIVEN IN THE EVENING. GENERIC REPORTED AS OSINEX.
     Route: 061
     Dates: start: 20070209
  9. PARACETAMOL [Concomitant]
     Indication: HEADACHE
     Route: 048
     Dates: start: 20070210
  10. ATARAX [Concomitant]
     Dosage: GENERIC REPORTED AS ALPRAZOLAM.
     Route: 048
     Dates: start: 20070223, end: 20070226
  11. DESLORATADINE [Concomitant]
     Indication: RASH
     Route: 048
     Dates: start: 20070223, end: 20070226
  12. DIPROSONE [Concomitant]
     Route: 061
     Dates: start: 20070223, end: 20070326
  13. FISH OIL [Concomitant]
     Indication: FATIGUE
     Dosage: DRUG REPORTED AS CAPITAL OMEGA 3 (FISH OIL)
     Route: 048
     Dates: start: 20070117

REACTIONS (4)
  - ANAEMIA [None]
  - NAUSEA [None]
  - PRURITUS [None]
  - RENAL FAILURE ACUTE [None]
